FAERS Safety Report 13294255 (Version 1)
Quarter: 2017Q1

REPORT INFORMATION
  Report Type: Report from Study
  Country: US (occurrence: US)
  Receive Date: 20170303
  Receipt Date: 20170303
  Transmission Date: 20170428
  Serious: Yes (Death, Life-Threatening, Hospitalization, Other)
  Sender: FDA-Public Use
  Company Number: US-BRISTOL-MYERS SQUIBB COMPANY-BMS-2017-016827

PATIENT
  Sex: Female

DRUGS (1)
  1. APIXABAN [Suspect]
     Active Substance: APIXABAN
     Indication: PULMONARY EMBOLISM
     Dosage: 2.5 MG, BID
     Route: 050

REACTIONS (15)
  - Pneumonia aspiration [Unknown]
  - Carbon dioxide increased [Unknown]
  - Malnutrition [Unknown]
  - Chromaturia [Unknown]
  - Constipation [Unknown]
  - Dementia [Fatal]
  - Intentional product misuse [Unknown]
  - Sepsis [Unknown]
  - Staphylococcus test positive [Unknown]
  - Large intestine perforation [Unknown]
  - Colostomy [Unknown]
  - Blood pressure decreased [Unknown]
  - Diverticulitis [Unknown]
  - Drug dose omission [Unknown]
  - Endotracheal intubation [Unknown]
